FAERS Safety Report 12730593 (Version 2)
Quarter: 2016Q3

REPORT INFORMATION
  Report Type: Spontaneous
  Country: CA (occurrence: CA)
  Receive Date: 20160910
  Receipt Date: 20160913
  Transmission Date: 20161109
  Serious: Yes (Death, Hospitalization)
  Sender: FDA-Public Use
  Company Number: CA-BAXTER-2016BAX045353

PATIENT
  Sex: Male

DRUGS (2)
  1. DIANEAL W/ DEXTROSE 2.5% [Suspect]
     Active Substance: CALCIUM CHLORIDE\DEXTROSE\MAGNESIUM CHLORIDE\SODIUM CHLORIDE\SODIUM LACTATE
     Indication: RENAL FAILURE
     Dosage: 1 BAG IN AFTERNOON
     Route: 033
     Dates: end: 20160809
  2. EXTRANEAL [Suspect]
     Active Substance: CALCIUM CHLORIDE\ICODEXTRIN\MAGNESIUM CHLORIDE\SODIUM CHLORIDE\SODIUM LACTATE
     Indication: RENAL FAILURE
     Dosage: 1 BAG IN MORNING AND 2ND AT NIGHT
     Route: 033
     Dates: end: 20160809

REACTIONS (7)
  - Renal failure [Fatal]
  - Asthenia [Unknown]
  - Incorrect dose administered [Unknown]
  - Mouth haemorrhage [Unknown]
  - Fall [Unknown]
  - Mouth injury [Unknown]
  - Fatigue [Unknown]

NARRATIVE: CASE EVENT DATE: 201604
